FAERS Safety Report 9473358 (Version 1)
Quarter: 2013Q3

REPORT INFORMATION
  Report Type: Spontaneous
  Country: US (occurrence: US)
  Receive Date: 20130823
  Receipt Date: 20130823
  Transmission Date: 20140515
  Serious: No
  Sender: FDA-Public Use
  Company Number: US-BRISTOL-MYERS SQUIBB COMPANY-18919886

PATIENT
  Age: 74 Year
  Sex: Male
  Weight: 107 kg

DRUGS (11)
  1. SPRYCEL [Suspect]
     Dosage: 70MG 1 TAB BY MOUTH EVERY OTHER DAY.
     Route: 048
     Dates: start: 20130327
  2. LASIX [Concomitant]
     Dosage: TABS
  3. ROPINIROLE [Concomitant]
     Dosage: TABS
  4. VIAGRA [Concomitant]
     Dosage: TABS
  5. SYNTHROID [Concomitant]
     Dosage: TABS
  6. DIOVAN [Concomitant]
     Dosage: TABS
  7. ECOTRIN [Concomitant]
     Dosage: TABS 325 MG EC
  8. ZOFRAN [Concomitant]
     Dosage: TABS
  9. PRILOSEC [Concomitant]
     Dosage: CAPS
  10. ARICEPT [Concomitant]
     Dosage: TABS
  11. VYTORIN 10/10 [Concomitant]
     Dosage: 1DF:10-10 MG TABS

REACTIONS (1)
  - Fluid retention [Unknown]
